FAERS Safety Report 4735753-6 (Version None)
Quarter: 2005Q3

REPORT INFORMATION
  Report Type: 
  Country: None (occurrence: None)
  Receive Date: 20050803
  Receipt Date: 20050803
  Transmission Date: 20060218
  Serious: Yes (Other)
  Sender: FDA-Public Use
  Company Number: None

PATIENT
  Age: 27 Year
  Sex: Male
  Weight: 70.3075 kg

DRUGS (1)
  1. VASOCIDIN [Suspect]
     Indication: OCULAR HYPERAEMIA
     Dosage: ONCE
     Dates: start: 19970101, end: 19970101

REACTIONS (1)
  - MULTIPLE CHEMICAL SENSITIVITY [None]
